FAERS Safety Report 9057836 (Version 2)
Quarter: 2013Q2

REPORT INFORMATION
  Report Type: Spontaneous
  Country: DE (occurrence: DE)
  Receive Date: 20130204
  Receipt Date: 20130621
  Transmission Date: 20140414
  Serious: Yes (Other)
  Sender: FDA-Public Use
  Company Number: DE-AMGEN-DEUSP2013006984

PATIENT
  Age: 43 Year
  Sex: Male

DRUGS (6)
  1. ENBREL [Suspect]
     Indication: RHEUMATOID ARTHRITIS
     Dosage: 50 MG, WEEKLY
     Route: 065
     Dates: start: 20090926
  2. METHOTREXATE [Concomitant]
     Dosage: UNK
  3. TRAUMEEL S                         /07494301/ [Concomitant]
     Dosage: UNK
  4. DICLOFENAC [Concomitant]
     Dosage: UNK
  5. ACTONEL [Concomitant]
     Dosage: UNK
  6. CALCIUM [Concomitant]
     Dosage: UNK

REACTIONS (5)
  - Pulmonary oedema [Unknown]
  - Arthropathy [Unknown]
  - Pleural effusion [Unknown]
  - Pain in extremity [Unknown]
  - Pneumonia [Unknown]
